FAERS Safety Report 12562362 (Version 3)
Quarter: 2018Q2

REPORT INFORMATION
  Report Type: Report from Study
  Country: US (occurrence: US)
  Receive Date: 20160715
  Receipt Date: 20180627
  Transmission Date: 20180711
  Serious: Yes (Hospitalization, Other)
  Sender: FDA-Public Use
  Company Number: US-SA-2016SA128743

PATIENT
  Age: 53 Year
  Sex: Female

DRUGS (1)
  1. ALEMTUZUMAB [Suspect]
     Active Substance: ALEMTUZUMAB
     Indication: MULTIPLE SCLEROSIS
     Dosage: 12 MG,QD
     Route: 041
     Dates: start: 20160608, end: 20160610

REACTIONS (14)
  - Disorientation [Unknown]
  - Gait disturbance [Not Recovered/Not Resolved]
  - Eyelid oedema [Unknown]
  - Ileus paralytic [Recovering/Resolving]
  - Herpes zoster [Not Recovered/Not Resolved]
  - Post herpetic neuralgia [Not Recovered/Not Resolved]
  - Lower respiratory tract infection [Unknown]
  - Lip swelling [Unknown]
  - Inflammatory bowel disease [Recovering/Resolving]
  - Malaise [Unknown]
  - Gait inability [Unknown]
  - Aggression [Unknown]
  - Pneumonia [Unknown]
  - Staphylococcal infection [Unknown]

NARRATIVE: CASE EVENT DATE: 2016
